FAERS Safety Report 5254288-8 (Version None)
Quarter: 2007Q1

REPORT INFORMATION
  Report Type: 
  Country: None (occurrence: None)
  Receive Date: 20070302
  Receipt Date: 20070228
  Transmission Date: 20070707
  Serious: Yes (Hospitalization)
  Sender: FDA-Public Use
  Company Number: FR-GLAXOSMITHKLINE-B0460143A

PATIENT
  Age: 39 Year
  Sex: Female

DRUGS (5)
  1. AMOXICILLIN [Suspect]
     Dosage: 1G THREE TIMES PER DAY
     Route: 048
     Dates: start: 20070128, end: 20070203
  2. RHINADVIL [Suspect]
     Dosage: 2UNIT THREE TIMES PER DAY
     Route: 048
     Dates: start: 20070201, end: 20070201
  3. ACETAMINOPHEN [Concomitant]
     Dosage: 1G PER DAY
     Route: 048
     Dates: start: 20070128, end: 20070201
  4. PAROXETINE HCL [Concomitant]
  5. SOTALOL HCL [Concomitant]

REACTIONS (4)
  - CHOLESTASIS [None]
  - HEPATITIS [None]
  - HEPATOCELLULAR DAMAGE [None]
  - JAUNDICE [None]
